FAERS Safety Report 14849594 (Version 1)
Quarter: 2018Q2

REPORT INFORMATION
  Report Type: Spontaneous
  Country: US (occurrence: US)
  Receive Date: 20180504
  Receipt Date: 20180504
  Transmission Date: 20180711
  Serious: Yes (Hospitalization, Other)
  Sender: FDA-Public Use
  Company Number: US-AMGEN-USASP2018060491

PATIENT
  Age: 57 Year
  Sex: Male

DRUGS (2)
  1. KYPROLIS [Suspect]
     Active Substance: CARFILZOMIB
     Dosage: UNK
     Route: 042
     Dates: start: 20180405, end: 20180405
  2. KYPROLIS [Suspect]
     Active Substance: CARFILZOMIB
     Indication: PLASMA CELL MYELOMA
     Dosage: UNK
     Route: 065

REACTIONS (5)
  - Dehydration [Unknown]
  - Clostridium difficile infection [Unknown]
  - Diarrhoea [Unknown]
  - Acute kidney injury [Unknown]
  - Hypotension [Unknown]

NARRATIVE: CASE EVENT DATE: 201804
